FAERS Safety Report 9549473 (Version 1)
Quarter: 2013Q2

REPORT INFORMATION
  Report Type: Spontaneous
  Country: US (occurrence: None)
  Receive Date: 20130627
  Receipt Date: 20130627
  Transmission Date: 20140414
  Serious: No
  Sender: FDA-Public Use
  Company Number: 1000043984

PATIENT
  Sex: Female

DRUGS (1)
  1. LINZESS (LINACLOTIDE) [Suspect]

REACTIONS (2)
  - Joint swelling [None]
  - Rash [None]
